FAERS Safety Report 6505295-6 (Version None)
Quarter: 2009Q4

REPORT INFORMATION
  Report Type: 
  Country: None (occurrence: None)
  Receive Date: 20091218
  Receipt Date: 20090401
  Transmission Date: 20100525
  Serious: No
  Sender: FDA-Public Use
  Company Number: US-BRISTOL-MYERS SQUIBB COMPANY-14571830

PATIENT
  Age: 57 Year
  Sex: Female
  Weight: 70 kg

DRUGS (1)
  1. QUESTRAN [Suspect]
     Indication: DIARRHOEA
     Route: 048
     Dates: start: 19990101

REACTIONS (1)
  - MIGRAINE [None]
